FAERS Safety Report 17719141 (Version 1)
Quarter: 2020Q2

REPORT INFORMATION
  Report Type: Spontaneous
  Country: US (occurrence: US)
  Receive Date: 20200428
  Receipt Date: 20200428
  Transmission Date: 20200714
  Serious: No
  Sender: FDA-Public Use
  Company Number: NVSC2020US113023

PATIENT
  Sex: Female

DRUGS (1)
  1. ILARIS [Suspect]
     Active Substance: CANAKINUMAB
     Indication: PRODUCT USED FOR UNKNOWN INDICATION
     Dosage: 140 MG (Q4 WEEKS)
     Route: 058
     Dates: start: 20200326, end: 20200423

REACTIONS (6)
  - Dizziness [Recovering/Resolving]
  - Nausea [Recovering/Resolving]
  - Throat irritation [Recovering/Resolving]
  - Headache [Recovering/Resolving]
  - Paraesthesia [Recovering/Resolving]
  - Rhinorrhoea [Recovering/Resolving]
